FAERS Safety Report 4458314-5 (Version None)
Quarter: 2004Q3

REPORT INFORMATION
  Report Type: 
  Country: None (occurrence: None)
  Receive Date: 20040924
  Receipt Date: 20040915
  Transmission Date: 20050211
  Serious: Yes (Other)
  Sender: FDA-Public Use
  Company Number: PHEH2004US09950

PATIENT
  Age: 35 Year
  Sex: Female

DRUGS (2)
  1. TEGRETOL [Suspect]
     Indication: AFFECTIVE DISORDER
     Dosage: 3 TABS DAILY
     Route: 048
     Dates: start: 20010101, end: 20010401
  2. DEPAKOTE [Suspect]
     Indication: AFFECTIVE DISORDER
     Dates: start: 20000101, end: 20010101

REACTIONS (10)
  - ABDOMINAL PAIN [None]
  - ACNE CYSTIC [None]
  - BLADDER DISCOMFORT [None]
  - CYSTITIS INTERSTITIAL [None]
  - GASTRITIS [None]
  - HEADACHE [None]
  - HORMONE LEVEL ABNORMAL [None]
  - OVARIAN CYST [None]
  - OVARIAN CYSTECTOMY [None]
  - POLLAKIURIA [None]
